FAERS Safety Report 7752371-6 (Version None)
Quarter: 2011Q3

REPORT INFORMATION
  Report Type: 
  Country: None (occurrence: None)
  Receive Date: 20110915
  Receipt Date: 20110905
  Transmission Date: 20111222
  Serious: No
  Sender: FDA-Public Use
  Company Number: JP-UCBSA-040714

PATIENT

DRUGS (2)
  1. VALPROATE SODIUM [Concomitant]
  2. KEPPRA [Suspect]
     Route: 048

REACTIONS (4)
  - NEUTROPHIL COUNT DECREASED [None]
  - HAEMOGLOBIN DECREASED [None]
  - WHITE BLOOD CELL COUNT DECREASED [None]
  - ANTICONVULSANT DRUG LEVEL DECREASED [None]
